FAERS Safety Report 23241691 (Version 3)
Quarter: 2023Q4

REPORT INFORMATION
  Report Type: Report from Study
  Country: AU (occurrence: AU)
  Receive Date: 20231129
  Receipt Date: 20231207
  Transmission Date: 20240110
  Serious: Yes (Hospitalization)
  Sender: FDA-Public Use
  Company Number: AU-AMGEN-AUSCT2023210280

PATIENT
  Age: 12 Year
  Sex: Male
  Weight: 43.3 kg

DRUGS (3)
  1. DENOSUMAB [Suspect]
     Active Substance: DENOSUMAB
     Indication: Osteoporosis
     Dosage: 0.62 MILLILITER
     Route: 058
     Dates: start: 20201126
  2. CALCIUM [Concomitant]
     Active Substance: CALCIUM
     Dosage: UNK
     Dates: start: 20201126
  3. Osteo d [Concomitant]
     Dosage: UNK
     Dates: start: 20201126, end: 202306

REACTIONS (1)
  - Metaphyseal corner fracture [Not Recovered/Not Resolved]

NARRATIVE: CASE EVENT DATE: 20231120
